FAERS Safety Report 9968814 (Version 1)
Quarter: 2014Q1

REPORT INFORMATION
  Report Type: Report from Study
  Country: US (occurrence: US)
  Receive Date: 20140306
  Receipt Date: 20140306
  Transmission Date: 20141002
  Serious: No
  Sender: FDA-Public Use
  Company Number: US-ABBVIE-13P-163-1141914-00

PATIENT
  Sex: Female

DRUGS (5)
  1. HUMIRA [Suspect]
     Indication: RHEUMATOID ARTHRITIS
  2. ZOLOFT [Concomitant]
     Indication: DEPRESSION
  3. MS CONTIN [Concomitant]
     Indication: ARTHRALGIA
  4. LUNESTA [Concomitant]
     Indication: INSOMNIA
     Dosage: NIGHTLY
  5. CLINDAMYCIN [Concomitant]
     Indication: PRODUCT USED FOR UNKNOWN INDICATION

REACTIONS (4)
  - Arthralgia [Not Recovered/Not Resolved]
  - Psoriasis [Recovering/Resolving]
  - Rheumatoid arthritis [Unknown]
  - Cataract [Not Recovered/Not Resolved]
